FAERS Safety Report 17624645 (Version 1)
Quarter: 2020Q2

REPORT INFORMATION
  Report Type: Other
  Country: US (occurrence: US)
  Receive Date: 20200403
  Receipt Date: 20200403
  Transmission Date: 20200713
  Serious: No
  Sender: FDA-Public Use
  Company Number: US-BIOVITRUM-2019US3795

PATIENT
  Sex: Male

DRUGS (2)
  1. MULTIVITAMIN CHILDRENS [Concomitant]
  2. ORFADIN [Suspect]
     Active Substance: NITISINONE
     Indication: TYROSINAEMIA
     Dosage: 0.2 ML DAILY
     Dates: start: 20170629

REACTIONS (1)
  - Swelling of eyelid [Unknown]
